FAERS Safety Report 7333370-5 (Version None)
Quarter: 2011Q1

REPORT INFORMATION
  Report Type: 
  Country: None (occurrence: None)
  Receive Date: 20110224
  Receipt Date: 20110208
  Transmission Date: 20110831
  Serious: Yes (Hospitalization)
  Sender: FDA-Public Use
  Company Number: DSA_44961_2011

PATIENT
  Age: 82 Year
  Sex: Male

DRUGS (9)
  1. ENALAPRIL MALEATE [Suspect]
     Indication: PRODUCT USED FOR UNKNOWN INDICATION
     Dosage: 5 MG QD ORAL
     Route: 048
     Dates: end: 20100926
  2. AMLODIPINE [Concomitant]
  3. FURIX [Concomitant]
  4. STILLNOCT [Concomitant]
  5. ATENOLOL [Concomitant]
     Indication: PRODUCT USED FOR UNKNOWN INDICATION
     Dosage: 50 MG QD ORAL
     Route: 048
     Dates: end: 20100926
  6. TROMBYL [Concomitant]
  7. ACETYLCYSTEINE [Concomitant]
  8. DIGOXIN [Suspect]
     Indication: ATRIAL FIBRILLATION
     Dosage: 0.13 MG QD ORAL
     Route: 048
     Dates: end: 20100926
  9. SPIRONOLACTONE [Suspect]
     Indication: PRODUCT USED FOR UNKNOWN INDICATION
     Dosage: 25 MG QD ORAL
     Route: 048
     Dates: end: 20100926

REACTIONS (5)
  - BRADYCARDIA [None]
  - ATRIAL FIBRILLATION [None]
  - HYPERKALAEMIA [None]
  - NAUSEA [None]
  - CARDIOACTIVE DRUG LEVEL INCREASED [None]
